FAERS Safety Report 10369390 (Version 1)
Quarter: 2014Q1

REPORT INFORMATION
  Report Type: Spontaneous
  Country: US (occurrence: None)
  Receive Date: 20140306
  Receipt Date: 20140306
  Transmission Date: 20141002
  Serious: Yes (Hospitalization)
  Sender: FDA-Public Use
  Company Number: 163-21880-13074844

PATIENT
  Age: 49 Year
  Sex: Female
  Weight: 75.9 kg

DRUGS (23)
  1. REVLIMID (LENALIDOMIDE) (CAPSULES) [Suspect]
     Indication: PLASMA CELL MYELOMA
     Dosage: 25 MG, 21 IN 21 D, PO
     Route: 048
     Dates: start: 20130305, end: 20130311
  2. SAR650984 [Suspect]
     Indication: PLASMA CELL MYELOMA
     Dosage: 3 MG/KG, NOT PROVIDED, UNLK
     Dates: start: 20130305, end: 20130305
  3. DEXAMETHASONE (DEXAMETHASONE) [Suspect]
     Indication: PLASMA CELL MYELOMA
     Dosage: 4 IN 22 D, PO
     Route: 048
     Dates: start: 20130305
  4. ACETAMINOPHEN (PARACETAMOL) [Concomitant]
  5. DIPHENHYDRAMINE (DIPHENHYDRAMINE) [Concomitant]
  6. METHYLPREDNISOLONE(METHYLPREDNISOLONE) [Concomitant]
  7. RANITIDINE (RANITIDINE) [Concomitant]
  8. LIDOCAINE (LIDOCAINE) [Concomitant]
  9. PROPOFOL (PROPOFOL) [Concomitant]
  10. PLASMA-LYTE (PLASMA-LYTE) [Concomitant]
  11. CYMBALTA [Concomitant]
  12. FLOVENT (FLUTICASONE PROPRIONATE) [Concomitant]
  13. PEPCID (FAMOTIDINE) [Concomitant]
  14. XANAX (ALPRAZOLAM) [Concomitant]
  15. ZYRTEC (CETIRIZINE HYDROCHLORIDE) [Concomitant]
  16. ALBUTEROL (SALBUTAMOL) [Concomitant]
  17. OXYCODONE/ACETAMINOPHEN OXYCOCET) [Concomitant]
  18. PRAVASTATIN (PRAVASTATIN) [Concomitant]
  19. SOLUMEDROL (METHYLPREDNISOLONE SODIUM SUCCINATE) [Concomitant]
  20. BABY ASPIRIN (ACETYLISALICYLIC ACID) [Concomitant]
  21. GAGAPENTIN (GABAPENTIN) [Concomitant]
  22. AUGMENTIN [Concomitant]
  23. AMOXICILLIN (AMOXICILLIN) [Concomitant]

REACTIONS (6)
  - Gastroenteritis [None]
  - Dehydration [None]
  - Vomiting [None]
  - Decreased appetite [None]
  - Hypokalaemia [None]
  - Fatigue [None]
